FAERS Safety Report 10353948 (Version 1)
Quarter: 2014Q3

REPORT INFORMATION
  Report Type: Spontaneous
  Country: US (occurrence: None)
  Receive Date: 20140729
  Receipt Date: 20140729
  Transmission Date: 20150326
  Serious: Yes (Other)
  Sender: FDA-Public Use
  Company Number: None

PATIENT
  Age: 86 Year
  Sex: Male

DRUGS (1)
  1. XTANDI [Suspect]
     Active Substance: ENZALUTAMIDE
     Indication: PROSTATE CANCER
     Dosage: 40MG  4 TABS  QD  PO
     Route: 048
     Dates: start: 201310, end: 201407

REACTIONS (1)
  - Hot flush [None]

NARRATIVE: CASE EVENT DATE: 20140701
